FAERS Safety Report 7115154-6 (Version None)
Quarter: 2010Q4

REPORT INFORMATION
  Report Type: 
  Country: None (occurrence: None)
  Receive Date: 20101122
  Receipt Date: 20100827
  Transmission Date: 20110411
  Serious: Yes (Hospitalization, Other)
  Sender: FDA-Public Use
  Company Number: US-BAYER-200941645NA

PATIENT
  Age: 29 Year
  Sex: Female
  Weight: 90 kg

DRUGS (12)
  1. YAZ [Suspect]
     Indication: ORAL CONTRACEPTION
     Route: 048
     Dates: start: 20061001, end: 20090501
  2. RELPAX [Concomitant]
     Indication: MIGRAINE
     Dates: start: 20060101
  3. COMBIVENT [Concomitant]
     Dates: start: 20030101
  4. ALBUTEROL [Concomitant]
     Route: 055
     Dates: start: 20050101, end: 20100101
  5. TOPROL-XL [Concomitant]
     Dates: start: 20070101, end: 20090101
  6. NSAID'S [Concomitant]
     Dates: start: 19920101
  7. PREVACID [Concomitant]
     Indication: GASTROOESOPHAGEAL REFLUX DISEASE
     Dates: start: 20020101
  8. LANSOPRAZOLE [Concomitant]
     Indication: GASTROOESOPHAGEAL REFLUX DISEASE
     Dates: start: 20060101, end: 20090101
  9. LORAZEPAM [Concomitant]
     Indication: TACHYCARDIA
  10. SEASONIQUE [Concomitant]
     Indication: POLYCYSTIC OVARIES
     Dates: start: 20090101
  11. ORTHO-CEPT [Concomitant]
     Indication: OVARIAN CYST
     Dates: start: 19950101, end: 20060101
  12. PHENERGAN [Concomitant]
     Indication: NAUSEA
     Dates: start: 20030101, end: 20090101

REACTIONS (19)
  - ABDOMINAL PAIN UPPER [None]
  - BACK PAIN [None]
  - BILIARY DYSKINESIA [None]
  - CHEST PAIN [None]
  - CHOLELITHIASIS [None]
  - COUGH [None]
  - DEHYDRATION [None]
  - DIARRHOEA [None]
  - DYSPNOEA [None]
  - GALLBLADDER NON-FUNCTIONING [None]
  - GASTROENTERITIS [None]
  - HYPERTHYROIDISM [None]
  - NAUSEA [None]
  - PALPITATIONS [None]
  - POST PROCEDURAL INFECTION [None]
  - PYREXIA [None]
  - SINUS TACHYCARDIA [None]
  - VOMITING [None]
  - WEIGHT INCREASED [None]
